FAERS Safety Report 8516036-5 (Version None)
Quarter: 2012Q3

REPORT INFORMATION
  Report Type: 
  Country: None (occurrence: None)
  Receive Date: 20120717
  Receipt Date: 20120423
  Transmission Date: 20120928
  Serious: No
  Sender: FDA-Public Use
  Company Number: US-NOVEN-12US004516

PATIENT
  Sex: Male

DRUGS (2)
  1. FENTANYL [Suspect]
     Indication: BACK PAIN
     Dosage: 100 UG/HR Q 48 HRS
     Route: 062
  2. FENTANYL [Suspect]
     Dosage: 50 UG/HR EVERY 48 HRS

REACTIONS (3)
  - APPLICATION SITE EXFOLIATION [None]
  - APPLICATION SITE IRRITATION [None]
  - APPLICATION SITE BURN [None]
